FAERS Safety Report 25115500 (Version 1)
Quarter: 2025Q1

REPORT INFORMATION
  Report Type: Spontaneous
  Country: AT (occurrence: AT)
  Receive Date: 20250324
  Receipt Date: 20250324
  Transmission Date: 20250408
  Serious: Yes (Other)
  Sender: ROCHE
  Company Number: None

PATIENT
  Age: 60 Year
  Sex: Female

DRUGS (3)
  1. TRASTUZUMAB [Suspect]
     Active Substance: TRASTUZUMAB
     Indication: Breast cancer
     Route: 065
     Dates: start: 202306
  2. TUCATINIB [Suspect]
     Active Substance: TUCATINIB
     Indication: Breast cancer
     Route: 065
     Dates: start: 202306
  3. CAPECITABINE [Suspect]
     Active Substance: CAPECITABINE
     Indication: Breast cancer
     Route: 065
     Dates: start: 202306

REACTIONS (5)
  - Drug eruption [Unknown]
  - Bone neoplasm [Unknown]
  - Nausea [Unknown]
  - Metastases to central nervous system [Unknown]
  - Metastases to eye [Unknown]

NARRATIVE: CASE EVENT DATE: 20230701
